FAERS Safety Report 23920568 (Version 1)
Quarter: 2024Q2

REPORT INFORMATION
  Report Type: Report from Study
  Country: AR (occurrence: AR)
  Receive Date: 20240530
  Receipt Date: 20240530
  Transmission Date: 20240716
  Serious: No
  Sender: FDA-Public Use
  Company Number: AR-JNJFOC-20240540260

PATIENT
  Age: 70 Year
  Sex: Male

DRUGS (1)
  1. SIMPONI [Suspect]
     Active Substance: GOLIMUMAB
     Indication: Rheumatoid arthritis
     Dosage: STRENGTH: 50.00 MG / 0.50 ML
     Route: 058
     Dates: start: 20230613

REACTIONS (2)
  - Device failure [Unknown]
  - Pain [Unknown]

NARRATIVE: CASE EVENT DATE: 20240503
